FAERS Safety Report 23720108 (Version 1)
Quarter: 2024Q2

REPORT INFORMATION
  Report Type: Spontaneous
  Country: US (occurrence: US)
  Receive Date: 20240408
  Receipt Date: 20240408
  Transmission Date: 20240715
  Serious: Yes (Other)
  Sender: FDA-Public Use
  Company Number: US-INCYTE CORPORATION-2024IN003507

PATIENT

DRUGS (15)
  1. JAKAFI [Suspect]
     Active Substance: RUXOLITINIB
     Indication: Angioimmunoblastic T-cell lymphoma
     Dosage: 5 MILLIGRAM, BID (TAKE AT ABOUT THE SAME TIME EACH DAY, TAKE WITH OR WITHOUT FOOD)
     Route: 048
     Dates: start: 20231027
  2. CLARITIN [Concomitant]
     Active Substance: LORATADINE
     Indication: Product used for unknown indication
     Dosage: 10 MILLIGRAM
     Route: 065
  3. CLINDAMYCIN HYDROCHLORIDE [Concomitant]
     Active Substance: CLINDAMYCIN HYDROCHLORIDE
     Indication: Product used for unknown indication
     Dosage: 300 MILLIGRAM
     Route: 065
  4. DEFERASIROX [Concomitant]
     Active Substance: DEFERASIROX
     Indication: Product used for unknown indication
     Dosage: 360 MILLIGRAM
     Route: 065
  5. JADENU [Concomitant]
     Active Substance: DEFERASIROX
     Indication: Product used for unknown indication
     Dosage: 360 MILLIGRAM
     Route: 065
  6. MECLIZINE [Concomitant]
     Active Substance: MECLIZINE HYDROCHLORIDE
     Indication: Product used for unknown indication
     Dosage: 25 MILLIGRAM
     Route: 065
  7. MIRALAX [Concomitant]
     Active Substance: POLYETHYLENE GLYCOL 3350
     Indication: Product used for unknown indication
     Route: 065
  8. NPLATE [Concomitant]
     Active Substance: ROMIPLOSTIM
     Indication: Product used for unknown indication
     Dosage: 250 MICROGRAM
     Route: 065
  9. PANTOPRAZOLE [Concomitant]
     Active Substance: PANTOPRAZOLE
     Indication: Product used for unknown indication
     Dosage: 40 MILLIGRAM
     Route: 065
  10. PEPCID [Concomitant]
     Active Substance: FAMOTIDINE
     Indication: Product used for unknown indication
     Dosage: 20 MILLIGRAM
     Route: 065
  11. POSACONAZOLE [Concomitant]
     Active Substance: POSACONAZOLE
     Indication: Product used for unknown indication
     Dosage: 100 MILLIGRAM
     Route: 065
  12. PRED FORTE [Concomitant]
     Active Substance: PREDNISOLONE ACETATE
     Indication: Product used for unknown indication
     Dosage: 1 PERCENT
     Route: 065
  13. PREDNISONE [Concomitant]
     Active Substance: PREDNISONE
     Indication: Product used for unknown indication
     Dosage: 20 MILLIGRAM
     Route: 065
  14. VITAMIN B1 [Concomitant]
     Active Substance: THIAMINE HYDROCHLORIDE
     Indication: Product used for unknown indication
     Dosage: 250 MILLIGRAM
     Route: 065
  15. VITAMIN D3 [Concomitant]
     Active Substance: CHOLECALCIFEROL
     Indication: Product used for unknown indication
     Dosage: 2000 INTERNATIONAL UNIT
     Route: 065

REACTIONS (2)
  - Eye disorder [Recovered/Resolved]
  - Off label use [Unknown]

NARRATIVE: CASE EVENT DATE: 20231027
